FAERS Safety Report 13284603 (Version 1)
Quarter: 2017Q1

REPORT INFORMATION
  Report Type: Spontaneous
  Country: CH (occurrence: CH)
  Receive Date: 20170301
  Receipt Date: 20170301
  Transmission Date: 20170428
  Serious: Yes (Hospitalization, Other)
  Sender: FDA-Public Use
  Company Number: CH-GILEAD-2017-0259858

PATIENT
  Age: 1 Day
  Sex: Female

DRUGS (3)
  1. ITINEROL B6 [Concomitant]
     Dosage: 1 DF, QD
     Route: 064
  2. ELEVIT PRONATAL                    /01730301/ [Concomitant]
     Dosage: 1 DF, QD
     Route: 064
  3. EVIPLERA [Suspect]
     Active Substance: EMTRICITABINE\RILPIVIRINE\TENOFOVIR DISOPROXIL FUMARATE
     Indication: HIV INFECTION
     Dosage: 1 DF, QD
     Route: 064
     Dates: start: 201601

REACTIONS (3)
  - Low birth weight baby [Unknown]
  - Foetal growth restriction [Unknown]
  - Foetal exposure during pregnancy [Unknown]

NARRATIVE: CASE EVENT DATE: 201601
